FAERS Safety Report 10482304 (Version 1)
Quarter: 2014Q3

REPORT INFORMATION
  Report Type: Spontaneous
  Country: CN (occurrence: CN)
  Receive Date: 20140929
  Receipt Date: 20140929
  Transmission Date: 20150326
  Serious: Yes (Life-Threatening, Hospitalization, Other)
  Sender: FDA-Public Use
  Company Number: CN-WATSON-2014-20799

PATIENT
  Age: 37 Year
  Sex: Female

DRUGS (2)
  1. PROGESTERONE (UNKNOWN) [Suspect]
     Active Substance: PROGESTERONE
     Indication: MENSTRUATION IRREGULAR
     Dosage: 100 MG, BID, FIVE DAYS CONSECUTIVE/ MENSTRUAL CYCLE
     Route: 065
  2. FLUTICASONE PROPIONATE W/SALMETEROL XINAFOATE [Concomitant]
     Active Substance: FLUTICASONE PROPIONATE\SALMETEROL XINAFOATE
     Indication: ASTHMA
     Dosage: 1 DF(PUFF), DAILY
     Route: 055

REACTIONS (1)
  - Kounis syndrome [Recovered/Resolved]
